FAERS Safety Report 17256798 (Version 2)
Quarter: 2020Q1

REPORT INFORMATION
  Report Type: Report from Study
  Country: JP (occurrence: JP)
  Receive Date: 20200110
  Receipt Date: 20200122
  Transmission Date: 20200409
  Serious: Yes (Hospitalization)
  Sender: FDA-Public Use
  Company Number: JP-EISAI MEDICAL RESEARCH-EC-2020-068244

PATIENT
  Age: 60 Year
  Sex: Male
  Weight: 86 kg

DRUGS (12)
  1. LENVIMA [Suspect]
     Active Substance: LENVATINIB
     Route: 048
     Dates: start: 20200106
  2. VEMLIDY [Concomitant]
     Active Substance: TENOFOVIR ALAFENAMIDE FUMARATE
  3. TAKECAB [Concomitant]
     Active Substance: VONOPRAZAN FUMURATE
  4. ACETYLOL [Concomitant]
  5. NOVORAPID [Concomitant]
     Active Substance: INSULIN ASPART
  6. TRESIBA [Concomitant]
     Active Substance: INSULIN DEGLUDEC
  7. AMITIZA [Concomitant]
     Active Substance: LUBIPROSTONE
  8. MAGMITT [Concomitant]
     Active Substance: MAGNESIUM OXIDE
  9. IA-CALL [Suspect]
     Active Substance: CISPLATIN
     Indication: HEPATOCELLULAR CARCINOMA
     Route: 041
     Dates: start: 20190829
  10. ANTEBATE:OINTMENT [Concomitant]
  11. LENVIMA [Suspect]
     Active Substance: LENVATINIB
     Indication: HEPATOCELLULAR CARCINOMA
     Route: 048
     Dates: start: 20190829, end: 20191224
  12. AMLODIPINE BESILATE [Concomitant]
     Active Substance: AMLODIPINE BESYLATE

REACTIONS (1)
  - Hepatic encephalopathy [Recovered/Resolved]

NARRATIVE: CASE EVENT DATE: 20191225
